FAERS Safety Report 24388541 (Version 1)
Quarter: 2024Q4

REPORT INFORMATION
  Report Type: Spontaneous
  Country: US (occurrence: US)
  Receive Date: 20241002
  Receipt Date: 20241002
  Transmission Date: 20250114
  Serious: No
  Sender: QOL
  Company Number: US-QOL Medical, LLC-2162378

PATIENT
  Age: 39 Year
  Sex: Female
  Weight: 57.727 kg

DRUGS (2)
  1. SUCRAID [Suspect]
     Active Substance: SACROSIDASE
     Dates: start: 20240112, end: 20240124
  2. XYZAL [Concomitant]
     Active Substance: LEVOCETIRIZINE DIHYDROCHLORIDE

REACTIONS (5)
  - Rash [Not Recovered/Not Resolved]
  - Pollakiuria [Not Recovered/Not Resolved]
  - Abdominal pain [Not Recovered/Not Resolved]
  - Abdominal distension [Not Recovered/Not Resolved]
  - Fatigue [Not Recovered/Not Resolved]

NARRATIVE: CASE EVENT DATE: 20240112
